FAERS Safety Report 19007109 (Version 1)
Quarter: 2021Q1

REPORT INFORMATION
  Report Type: Spontaneous
  Country: US (occurrence: US)
  Receive Date: 20210312
  Receipt Date: 20210312
  Transmission Date: 20210420
  Serious: No
  Sender: FDA-Public Use
  Company Number: None

PATIENT
  Age: 43 Year
  Sex: Male

DRUGS (4)
  1. PREDNISONE. [Concomitant]
     Active Substance: PREDNISONE
  2. METHYLPRED [Concomitant]
     Active Substance: METHYLPREDNISOLONE
  3. ENBREL [Suspect]
     Active Substance: ETANERCEPT
     Indication: ANKYLOSING SPONDYLITIS
     Dosage: ?          OTHER DOSE:1 CART (50MG);?
     Route: 058
     Dates: start: 20201009
  4. APAP/CODEINE [Concomitant]
     Active Substance: ACETAMINOPHEN\CODEINE PHOSPHATE

REACTIONS (4)
  - Therapy interrupted [None]
  - Nerve compression [None]
  - Condition aggravated [None]
  - Surgery [None]

NARRATIVE: CASE EVENT DATE: 20210301
